FAERS Safety Report 15390468 (Version 1)
Quarter: 2018Q3

REPORT INFORMATION
  Report Type: Spontaneous
  Country: US (occurrence: US)
  Receive Date: 20180909
  Receipt Date: 20180909
  Transmission Date: 20181010
  Serious: Yes (Disabling)
  Sender: FDA-Public Use
  Company Number: None

PATIENT
  Age: 63 Year
  Sex: Male
  Weight: 74.25 kg

DRUGS (9)
  1. METHYLPHENIDATE. [Concomitant]
     Active Substance: METHYLPHENIDATE
  2. FINASTERIDE. [Suspect]
     Active Substance: FINASTERIDE
     Indication: BENIGN PROSTATIC HYPERPLASIA
     Dosage: ?          QUANTITY:1 TABLET(S);?
     Route: 048
     Dates: start: 20171015, end: 20180114
  3. TRAZODONE [Concomitant]
     Active Substance: TRAZODONE HYDROCHLORIDE
  4. POMEGRANITE SUPPLEMENT [Concomitant]
  5. BIKTARVY [Concomitant]
     Active Substance: BICTEGRAVIR SODIUM\EMTRICITABINE\TENOFOVIR ALAFENAMIDE FUMARATE
  6. GABAPENTIN. [Concomitant]
     Active Substance: GABAPENTIN
  7. CLONAZEPAM. [Concomitant]
     Active Substance: CLONAZEPAM
  8. MULTIVITAMIN [Concomitant]
     Active Substance: VITAMINS
  9. CRANBERRY SUPPLEMENT [Concomitant]

REACTIONS (8)
  - Impaired work ability [None]
  - Sleep disorder [None]
  - Erectile dysfunction [None]
  - Muscle disorder [None]
  - Exercise tolerance decreased [None]
  - Libido decreased [None]
  - Feeling abnormal [None]
  - Abnormal dreams [None]

NARRATIVE: CASE EVENT DATE: 20180101
